FAERS Safety Report 4973365-X (Version None)
Quarter: 2006Q2

REPORT INFORMATION
  Report Type: 
  Country: None (occurrence: None)
  Receive Date: 20060414
  Receipt Date: 20060410
  Transmission Date: 20061013
  Serious: Yes (Death)
  Sender: FDA-Public Use
  Company Number: ES-BOEHRINGER INGELHEIM PHARMACEUTICALS, INC.-2006-DE-01878GD

PATIENT
  Age: 83 Year
  Sex: Female

DRUGS (5)
  1. PERSANTIN [Suspect]
     Route: 048
  2. GELOCATIL [Suspect]
     Route: 048
  3. VOLTAREN [Suspect]
     Route: 061
  4. ORFIDAL [Suspect]
     Route: 048
  5. RANUBER [Suspect]
     Route: 048

REACTIONS (3)
  - DUODENAL ULCER HAEMORRHAGE [None]
  - EROSIVE DUODENITIS [None]
  - GASTRIC ULCER HAEMORRHAGE [None]
